FAERS Safety Report 6439127-1 (Version None)
Quarter: 2009Q4

REPORT INFORMATION
  Report Type: 
  Country: None (occurrence: None)
  Receive Date: 20091112
  Receipt Date: 20090106
  Transmission Date: 20100525
  Serious: Yes (Other)
  Sender: FDA-Public Use
  Company Number: 2009BH000199

PATIENT
  Age: 5 Year
  Sex: Female
  Weight: 19.0511 kg

DRUGS (9)
  1. GAMMAGARD LIQUID [Suspect]
     Indication: INFECTION
     Dosage: 400 MG/KG; EVERY MO; IV, 400 MG/KG; EVERY MO; IV, 50 CC; EVERY MO; IV
     Route: 042
     Dates: start: 20081112, end: 20081112
  2. GAMMAGARD LIQUID [Suspect]
     Indication: SELECTIVE IGG SUBCLASS DEFICIENCY
     Dosage: 400 MG/KG; EVERY MO; IV, 400 MG/KG; EVERY MO; IV, 50 CC; EVERY MO; IV
     Route: 042
     Dates: start: 20081112, end: 20081112
  3. GAMMAGARD LIQUID [Suspect]
     Indication: INFECTION
     Dosage: 400 MG/KG; EVERY MO; IV, 400 MG/KG; EVERY MO; IV, 50 CC; EVERY MO; IV
     Route: 042
     Dates: start: 20081201, end: 20081201
  4. GAMMAGARD LIQUID [Suspect]
     Indication: SELECTIVE IGG SUBCLASS DEFICIENCY
     Dosage: 400 MG/KG; EVERY MO; IV, 400 MG/KG; EVERY MO; IV, 50 CC; EVERY MO; IV
     Route: 042
     Dates: start: 20081201, end: 20081201
  5. GAMMAGARD LIQUID [Suspect]
     Indication: INFECTION
     Dosage: 400 MG/KG; EVERY MO; IV, 400 MG/KG; EVERY MO; IV, 50 CC; EVERY MO; IV
     Route: 042
     Dates: start: 20090107, end: 20090107
  6. GAMMAGARD LIQUID [Suspect]
     Indication: SELECTIVE IGG SUBCLASS DEFICIENCY
     Dosage: 400 MG/KG; EVERY MO; IV, 400 MG/KG; EVERY MO; IV, 50 CC; EVERY MO; IV
     Route: 042
     Dates: start: 20090107, end: 20090107
  7. HYDROCORTISONE [Concomitant]
  8. ORAPRED [Concomitant]
  9. ADVAIR DISKUS 100/50 [Concomitant]

REACTIONS (1)
  - MENINGITIS ASEPTIC [None]
